FAERS Safety Report 23938008 (Version 1)
Quarter: 2024Q2

REPORT INFORMATION
  Report Type: Spontaneous
  Country: CN (occurrence: CN)
  Receive Date: 20240604
  Receipt Date: 20240604
  Transmission Date: 20240716
  Serious: Yes (Hospitalization, Other)
  Sender: FDA-Public Use
  Company Number: CN-GLAXOSMITHKLINE-CN2024APC066564

PATIENT

DRUGS (1)
  1. LAMICTAL [Suspect]
     Active Substance: LAMOTRIGINE
     Indication: Epilepsy
     Dosage: 50.00 MG, QD
     Route: 048
     Dates: start: 20240410, end: 20240410

REACTIONS (12)
  - Acute hepatic failure [Recovering/Resolving]
  - Erythema [Recovering/Resolving]
  - Papule [Recovering/Resolving]
  - Pruritus [Recovering/Resolving]
  - Skin temperature increased [Recovering/Resolving]
  - Skin exfoliation [Recovering/Resolving]
  - Pain [Recovering/Resolving]
  - Pyrexia [Recovering/Resolving]
  - Condition aggravated [Recovering/Resolving]
  - Skin fissures [Recovering/Resolving]
  - Hepatic function abnormal [Recovering/Resolving]
  - Exposure during pregnancy [Unknown]
